FAERS Safety Report 8967737 (Version 2)
Quarter: 2012Q4

REPORT INFORMATION
  Report Type: Spontaneous
  Country: ZA (occurrence: None)
  Receive Date: 20121210
  Receipt Date: 20121214
  Transmission Date: 20130627
  Serious: Yes (Death)
  Sender: FDA-Public Use
  Company Number: DKLU1086830

PATIENT
  Age: 50 Year
  Sex: Male

DRUGS (2)
  1. ONFI [Suspect]
     Indication: STRESS
     Dosage: 60 DF dosage form, Once, Oral
     Route: 048
  2. DORMONOCT (LOPRAZOLAM MESILATE) [Concomitant]

REACTIONS (2)
  - Completed suicide [None]
  - Arrhythmia [None]
